FAERS Safety Report 9174371 (Version 1)
Quarter: 2013Q1

REPORT INFORMATION
  Report Type: Spontaneous
  Country: GB (occurrence: GB)
  Receive Date: 20130320
  Receipt Date: 20130320
  Transmission Date: 20140127
  Serious: Yes (Hospitalization, Disabling)
  Sender: FDA-Public Use
  Company Number: PHFR2013GB001130

PATIENT
  Age: 19 Year
  Sex: Female

DRUGS (2)
  1. DICLOFENAC [Suspect]
     Indication: ANALGESIC THERAPY
     Dosage: 100 MG, UNK
     Route: 067
     Dates: start: 20130208, end: 20130208
  2. MISOPROSTOL [Suspect]
     Indication: ABORTION INDUCED
     Dosage: 800 UG, UNK
     Route: 067
     Dates: start: 20130208, end: 20130208

REACTIONS (4)
  - Incorrect route of drug administration [Not Recovered/Not Resolved]
  - Anaphylactic reaction [Not Recovered/Not Resolved]
  - Eye swelling [Not Recovered/Not Resolved]
  - Off label use [Unknown]
